FAERS Safety Report 9523334 (Version 1)
Quarter: 2013Q1

REPORT INFORMATION
  Report Type: Spontaneous
  Country: US (occurrence: None)
  Receive Date: 20130305
  Receipt Date: 20130305
  Transmission Date: 20140127
  Serious: Yes (Other)
  Sender: FDA-Public Use
  Company Number: 163-21880-12072460

PATIENT
  Age: 77 Year
  Sex: Male
  Weight: 100.7 kg

DRUGS (14)
  1. REVLIMID (LENALIDOMIDE) (CAPSULES) [Suspect]
     Indication: MYELODYSPLASTIC SYNDROME
     Dosage: 5 MG, 28 IN 28 D, PO
     Route: 048
     Dates: start: 20120629
  2. ACTOS (PIOGLITAZONE) (UNKNOWN) [Concomitant]
  3. ARANESP (DARBEPOETIN ALFA) (UNKNOWN) [Concomitant]
  4. CELEBREX (CELECOXIB) (UNKNOWN) [Concomitant]
  5. ESCITALOPRAM (ESCITALOPRAM) (UNKNOWN) [Concomitant]
  6. EXELON (RIVASTIGMINE TARTRATE) (UNKNOWN) [Concomitant]
  7. LISINOPRIL (LISINOPRIL) (UNKNOWN) [Concomitant]
  8. METOPROLOL (METOPROLOL) (UNKNOWN) [Concomitant]
  9. MULTIVITAMIN (MULTIVITAMINS) (UNKNOWN) [Concomitant]
  10. NAMENDA (MEMANTINE HYDROCHLORIDE) (UNKNOWN) [Concomitant]
  11. SEROQUEL (QUETIADPINE FUMARATE) (UNKNOWN) [Concomitant]
  12. SIMVASTATIN [Concomitant]
  13. SUCRALFATE (SUCRALFATE) (UNKNOWN) [Concomitant]
  14. VOLTAREN (DICLOFENAC SODIUM) (GEL) [Concomitant]

REACTIONS (1)
  - Tremor [None]
